FAERS Safety Report 4293779-3 (Version None)
Quarter: 2004Q1

REPORT INFORMATION
  Report Type: 
  Country: None (occurrence: None)
  Receive Date: 20040210
  Receipt Date: 20040129
  Transmission Date: 20041129
  Serious: No
  Sender: FDA-Public Use
  Company Number: 04P-163-0248980

PATIENT
  Sex: Female

DRUGS (2)
  1. MAVIK [Suspect]
  2. ALLOPURINOL [Suspect]

REACTIONS (1)
  - STEVENS-JOHNSON SYNDROME [None]
